FAERS Safety Report 4531407-X (Version None)
Quarter: 2004Q4

REPORT INFORMATION
  Report Type: 
  Country: None (occurrence: None)
  Receive Date: 20041216
  Receipt Date: 20041130
  Transmission Date: 20050328
  Serious: Yes (Hospitalization)
  Sender: FDA-Public Use
  Company Number: 203245

PATIENT
  Age: 48 Year
  Sex: Female

DRUGS (1)
  1. AVONEX [Suspect]
     Indication: MULTIPLE SCLEROSIS
     Dosage: 30 UG; QW; IM
     Route: 030
     Dates: start: 20040506

REACTIONS (3)
  - BRAIN STEM SYNDROME [None]
  - DISEASE PROGRESSION [None]
  - SECONDARY PROGRESSIVE MULTIPLE SCLEROSIS [None]
